FAERS Safety Report 16240614 (Version 1)
Quarter: 2019Q2

REPORT INFORMATION
  Report Type: Spontaneous
  Country: US (occurrence: US)
  Receive Date: 20190425
  Receipt Date: 20190425
  Transmission Date: 20190711
  Serious: Yes (Hospitalization)
  Sender: FDA-Public Use
  Company Number: US-MAYNE PHARMA-2019MYN000304

PATIENT

DRUGS (14)
  1. CLOZAPINE. [Suspect]
     Active Substance: CLOZAPINE
     Dosage: 50 MG BID
     Route: 048
     Dates: start: 20190406, end: 20190407
  2. CLOZAPINE. [Suspect]
     Active Substance: CLOZAPINE
     Dosage: 25 MG BID
     Route: 048
     Dates: start: 20190408, end: 20190408
  3. CLOZAPINE. [Suspect]
     Active Substance: CLOZAPINE
     Dosage: 25 MG BID
     Route: 048
     Dates: start: 20190405, end: 20190406
  4. METHAMPHETAMINE HYDROCHLORIDE. [Suspect]
     Active Substance: METHAMPHETAMINE HYDROCHLORIDE
     Indication: SCHIZOPHRENIA
     Dosage: UNK
     Route: 065
  5. DEPAKOTE [Concomitant]
     Active Substance: DIVALPROEX SODIUM
     Indication: SCHIZOPHRENIA
     Dosage: 500 MG IN MORNING, 1500 IN EVENING, TOTAL DOSE OF 2000 MG
     Route: 065
     Dates: start: 20190408
  6. PROPANOLOL                         /00030001/ [Concomitant]
     Active Substance: PROPRANOLOL HYDROCHLORIDE
     Indication: PRODUCT USED FOR UNKNOWN INDICATION
     Dosage: 10 MG, BID
     Route: 065
     Dates: start: 20190408
  7. OLANZAPINE. [Concomitant]
     Active Substance: OLANZAPINE
     Indication: AGITATION
     Dosage: PRN
     Route: 065
     Dates: start: 20190408
  8. LORAZEPAM. [Concomitant]
     Active Substance: LORAZEPAM
     Indication: AGITATION
     Dosage: 0.5 MG AT NOON
     Route: 065
     Dates: start: 20190408
  9. LORAZEPAM. [Concomitant]
     Active Substance: LORAZEPAM
     Dosage: UNK
  10. CLOZAPINE. [Suspect]
     Active Substance: CLOZAPINE
     Indication: SCHIZOPHRENIA
     Dosage: 475 MG QHS
     Route: 048
  11. CLOZAPINE. [Suspect]
     Active Substance: CLOZAPINE
     Dosage: 50 MG, BID
     Route: 048
     Dates: start: 20190409, end: 20190410
  12. CLOZAPINE. [Suspect]
     Active Substance: CLOZAPINE
     Dosage: 100 MG, BID
     Route: 048
     Dates: start: 20190411, end: 20190414
  13. CLOZAPINE. [Suspect]
     Active Substance: CLOZAPINE
     Dosage: 150 MG QHS AND 100 MG QAM, TOTAL DOSE OF 250 MG QD
     Route: 048
     Dates: start: 20190415
  14. LORAZEPAM. [Concomitant]
     Active Substance: LORAZEPAM
     Dosage: PRN
     Route: 065
     Dates: start: 20190408

REACTIONS (6)
  - Lactic acidosis [Recovering/Resolving]
  - Toxicity to various agents [Recovered/Resolved]
  - Metabolic acidosis [Recovering/Resolving]
  - Rhabdomyolysis [Recovered/Resolved]
  - Leukocytosis [Recovered/Resolved]
  - Acute kidney injury [Recovering/Resolving]

NARRATIVE: CASE EVENT DATE: 20190404
